FAERS Safety Report 10027063 (Version 2)
Quarter: 2014Q2

REPORT INFORMATION
  Report Type: Report from Study
  Country: BR (occurrence: BR)
  Receive Date: 20140321
  Receipt Date: 20140526
  Transmission Date: 20141212
  Serious: Yes (Hospitalization, Other)
  Sender: FDA-Public Use
  Company Number: PHHY2014BR031757

PATIENT
  Age: 60 Year
  Sex: Female
  Weight: 33 kg

DRUGS (9)
  1. FORASEQ [Suspect]
     Indication: CHRONIC OBSTRUCTIVE PULMONARY DISEASE
     Dosage: UNK, BID (EVERY 12 HOURS)
     Route: 055
     Dates: start: 201302
  2. ALENIA [Suspect]
     Indication: CHRONIC OBSTRUCTIVE PULMONARY DISEASE
     Dosage: UNK, BID
     Route: 055
     Dates: start: 201212
  3. BUSONID [Concomitant]
     Indication: RHINITIS
     Dosage: 2 DF, PER DAY
     Route: 045
     Dates: start: 20131120
  4. BUPROPION [Concomitant]
     Indication: SMOKING CESSATION THERAPY
     Dosage: 1 DF, PER DAY
     Route: 048
     Dates: start: 20131109
  5. BUPROPION [Concomitant]
     Indication: ANXIETY
  6. NIQUITIN [Concomitant]
     Indication: SMOKING CESSATION THERAPY
     Dosage: 7 MG, PER DAY
     Route: 058
  7. NIQUITIN [Concomitant]
     Indication: ANXIETY
  8. SPIRIVA [Concomitant]
     Indication: CHRONIC OBSTRUCTIVE PULMONARY DISEASE
     Dosage: 4 ML FOR 60 DOSES, QD
     Route: 048
     Dates: start: 201305
  9. SPIRIVA [Concomitant]
     Indication: ANXIETY
     Dosage: 2.54 UG, QD
     Route: 048
     Dates: start: 20131109

REACTIONS (3)
  - Dyspnoea [Recovered/Resolved]
  - Lung disorder [Unknown]
  - Quality of life decreased [Not Recovered/Not Resolved]
